FAERS Safety Report 9827901 (Version 1)
Quarter: 2014Q1

REPORT INFORMATION
  Report Type: Other
  Country: US (occurrence: US)
  Receive Date: 20140117
  Receipt Date: 20140117
  Transmission Date: 20141002
  Serious: Yes (Death)
  Sender: FDA-Public Use
  Company Number: US-LEHIGH_VALLEY-USA-POI0580201400059

PATIENT
  Age: 71 Year
  Sex: Male

DRUGS (6)
  1. OXYCODONE HCL CAPSULES [Suspect]
     Dates: end: 2012
  2. ATENOLOL [Suspect]
     Dates: end: 2012
  3. TEMAZEPAM [Suspect]
     Dates: end: 2012
  4. LEVOTHYROXINE [Suspect]
     Dates: end: 2012
  5. OMEPRAZOLE [Suspect]
     Dates: end: 2012
  6. CLONAZEPAM [Suspect]
     Dates: end: 2012

REACTIONS (1)
  - Completed suicide [None]
